FAERS Safety Report 13887127 (Version 1)
Quarter: 2020Q3

REPORT INFORMATION
  Report Type: Report from Study
  Country: US (occurrence: US)
  Receive Date: 20170821
  Receipt Date: 20170821
  Transmission Date: 20201104
  Serious: Yes (Death, Life-Threatening, Hospitalization)
  Sender: FDA-Public Use
  Company Number: US-ASTRAZENECA-2014SE15372

PATIENT
  Age: 64 Year
  Sex: Female
  Weight: 56.4 kg

DRUGS (31)
  1. COMPAZINE [Concomitant]
     Active Substance: PROCHLORPERAZINE MALEATE
     Indication: NAUSEA
     Route: 042
  2. SODIUM GLYCEROPHOSPHATE [Concomitant]
     Active Substance: SODIUM GLYCEROPHOSPHATE
     Dosage: 125 ML/HR AS REQUIRED
     Route: 042
  3. FRAGMIN [Concomitant]
     Active Substance: DALTEPARIN SODIUM
     Route: 058
  4. NS [Concomitant]
     Active Substance: SODIUM CHLORIDE
     Dosage: 40 ML/HR
     Route: 042
  5. ZOFRAN [Concomitant]
     Active Substance: ONDANSETRON HYDROCHLORIDE
     Indication: NAUSEA
     Route: 042
  6. ATIVAN [Concomitant]
     Active Substance: LORAZEPAM
     Indication: ANXIETY
     Route: 048
  7. DEXTROSE. [Concomitant]
     Active Substance: DEXTROSE
     Dosage: 50.0ML AS REQUIRED
     Route: 042
  8. DILAUDID [Concomitant]
     Active Substance: HYDROMORPHONE HYDROCHLORIDE
     Indication: PAIN
     Route: 042
  9. DUONEB [Concomitant]
     Active Substance: ALBUTEROL SULFATE\IPRATROPIUM BROMIDE
     Route: 055
  10. K?TAB [Concomitant]
     Active Substance: POTASSIUM CHLORIDE
     Dosage: 40.0MEQ AS REQUIRED
     Route: 048
  11. CALCIUM GLUCONATE. [Concomitant]
     Active Substance: CALCIUM GLUCONATE
     Dosage: 120 ML/HR AS REQUIRED
     Route: 042
  12. MAGNESIUM SULFATE. [Concomitant]
     Active Substance: MAGNESIUM SULFATE
     Dosage: 50 ML/HR AS REQIURED
     Route: 042
  13. POTASSIUM CHLORIDE. [Concomitant]
     Active Substance: POTASSIUM CHLORIDE
     Dosage: 15.0ML AS REQUIRED
     Route: 042
  14. MEDI4736 [Suspect]
     Active Substance: DURVALUMAB
     Indication: NON-SMALL CELL LUNG CANCER
     Route: 042
     Dates: start: 20140116, end: 20140219
  15. TREMELIMUMAB. [Suspect]
     Active Substance: TREMELIMUMAB
     Indication: NON-SMALL CELL LUNG CANCER
     Route: 042
     Dates: start: 20140116
  16. PREDNISONE. [Concomitant]
     Active Substance: PREDNISONE
     Indication: AUTOIMMUNE HEPATITIS
  17. SODIUM GLYCEROPHOSPHATE [Concomitant]
     Active Substance: SODIUM GLYCEROPHOSPHATE
     Dosage: 62.5 ML/HR AS REQUIRED
     Route: 042
  18. HUMULIN R [Concomitant]
     Active Substance: INSULIN HUMAN
     Dosage: EVERY SIX HOURS
     Route: 058
  19. PROTONIX [Concomitant]
     Active Substance: PANTOPRAZOLE SODIUM
     Dosage: DAILY
  20. TRAVATAN [Concomitant]
     Active Substance: TRAVOPROST
     Dosage: 1 DROP QPM
     Route: 047
  21. CALCIUM GLUCONATE. [Concomitant]
     Active Substance: CALCIUM GLUCONATE
     Dosage: 145 ML/HR AS REQUIRED
     Route: 042
  22. POTASSIUM CHLORIDE. [Concomitant]
     Active Substance: POTASSIUM CHLORIDE
     Dosage: 30.0ML AS REQUIRED
     Route: 042
  23. PREDNISONE. [Concomitant]
     Active Substance: PREDNISONE
     Indication: AUTOIMMUNE HEPATITIS
  24. K?TAB [Concomitant]
     Active Substance: POTASSIUM CHLORIDE
     Dosage: 20.0MEQ AS REQUIRED
     Route: 048
  25. SOLU?MEDROL [Concomitant]
     Active Substance: METHYLPREDNISOLONE SODIUM SUCCINATE
     Route: 042
  26. MAGNESIUM SULFATE. [Concomitant]
     Active Substance: MAGNESIUM SULFATE
     Dosage: 100 ML/HR AS REQIURED
     Route: 042
  27. POTASSIUM CHLORIDE. [Concomitant]
     Active Substance: POTASSIUM CHLORIDE
     Dosage: 100.0ML AS REQUIRED
     Route: 042
  28. SODIUM GLYCEROPHOSPHATE [Concomitant]
     Active Substance: SODIUM GLYCEROPHOSPHATE
     Dosage: 83.3 ML/HR AS REQUIRED
     Route: 042
  29. POTASSIUM CHLORIDE. [Concomitant]
     Active Substance: POTASSIUM CHLORIDE
     Dosage: 50.0ML AS REQUIRED
     Route: 042
  30. MESTINON [Concomitant]
     Active Substance: PYRIDOSTIGMINE BROMIDE
  31. DILAUDID [Concomitant]
     Active Substance: HYDROMORPHONE HYDROCHLORIDE
     Indication: PAIN
     Route: 042

REACTIONS (2)
  - Myasthenia gravis [Not Recovered/Not Resolved]
  - Polymyositis [Fatal]

NARRATIVE: CASE EVENT DATE: 20140223
